FAERS Safety Report 23422643 (Version 1)
Quarter: 2024Q1

REPORT INFORMATION
  Report Type: Spontaneous
  Country: US (occurrence: US)
  Receive Date: 20240119
  Receipt Date: 20240119
  Transmission Date: 20240410
  Serious: No
  Sender: FDA-Public Use
  Company Number: US-PFIZER INC-PV202400007424

PATIENT
  Age: 35 Year
  Sex: Female

DRUGS (2)
  1. XELJANZ XR [Suspect]
     Active Substance: TOFACITINIB CITRATE
     Indication: Colitis ulcerative
     Dosage: 22 MG, 1X/DAY
     Route: 048
     Dates: start: 20231107
  2. HUMIRA [Concomitant]
     Active Substance: ADALIMUMAB
     Dosage: PEN (2/BOX)

REACTIONS (2)
  - Frequent bowel movements [Unknown]
  - Frequent bowel movements [Unknown]

NARRATIVE: CASE EVENT DATE: 20231107
